FAERS Safety Report 23422450 (Version 1)
Quarter: 2024Q1

REPORT INFORMATION
  Report Type: Spontaneous
  Country: US (occurrence: None)
  Receive Date: 20240118
  Receipt Date: 20240118
  Transmission Date: 20240410
  Serious: Yes (Life-Threatening, Hospitalization)
  Sender: FDA-Public Use
  Company Number: None

PATIENT
  Age: 51 Year
  Sex: Female
  Weight: 76.6 kg

DRUGS (1)
  1. ISOVUE 370 [Suspect]
     Active Substance: IOPAMIDOL
     Indication: Imaging procedure
     Dosage: FREQUENCY : ONCE;?
     Route: 042
     Dates: start: 20231231, end: 20231231

REACTIONS (11)
  - Contrast media reaction [None]
  - Feeling abnormal [None]
  - Dyspnoea [None]
  - Rash [None]
  - Hypotension [None]
  - Urinary incontinence [None]
  - Consciousness fluctuating [None]
  - Dyspnoea [None]
  - Anaphylactic reaction [None]
  - Depressed level of consciousness [None]
  - Hypoxia [None]

NARRATIVE: CASE EVENT DATE: 20231231
